FAERS Safety Report 9113158 (Version 1)
Quarter: 2013Q1

REPORT INFORMATION
  Report Type: Spontaneous
  Country: US (occurrence: US)
  Receive Date: 20130211
  Receipt Date: 20130211
  Transmission Date: 20140127
  Serious: No
  Sender: FDA-Public Use
  Company Number: US-ASTRAZENECA-2013SE07073

PATIENT
  Age: 58 Year
  Sex: Female
  Weight: 61.2 kg

DRUGS (5)
  1. SYMBICORT PMDI [Suspect]
     Indication: CHRONIC OBSTRUCTIVE PULMONARY DISEASE
     Dosage: 80/4.5 MCG 2 PUFF ,TWO TIMES A DAY
     Route: 055
     Dates: start: 2012, end: 2013
  2. SYMBICORT PMDI [Suspect]
     Indication: CHRONIC OBSTRUCTIVE PULMONARY DISEASE
     Dosage: 80/4.5 MCG 1 PUFF ,TWO TIMES A DAY
     Route: 055
  3. COMBIVENT [Concomitant]
     Indication: CHRONIC OBSTRUCTIVE PULMONARY DISEASE
     Route: 055
  4. LORAZEPAM [Concomitant]
     Route: 048
  5. NEBULIZER [Concomitant]

REACTIONS (5)
  - Pulmonary congestion [Unknown]
  - Dyspnoea [Unknown]
  - Chest discomfort [Unknown]
  - Pleuritic pain [Unknown]
  - Intentional drug misuse [Unknown]
